FAERS Safety Report 25796879 (Version 1)
Quarter: 2025Q3

REPORT INFORMATION
  Report Type: Spontaneous
  Country: US (occurrence: None)
  Receive Date: 20250912
  Receipt Date: 20250912
  Transmission Date: 20251021
  Serious: Yes (Hospitalization)
  Sender: FDA-CTU
  Company Number: None

PATIENT
  Sex: Male

DRUGS (10)
  1. RINVOQ [Suspect]
     Active Substance: UPADACITINIB
     Indication: Dermatitis atopic
     Route: 048
     Dates: start: 20240228
  2. ALBUTEROL NEB 0.63MG/3 [Concomitant]
  3. BENADRYL  CAP 25MG [Concomitant]
  4. BETAMETH VAL AER 0.12% [Concomitant]
  5. EPIPEN 2-PAK INJ 0.3MG [Concomitant]
  6. FLOVENT DISK AER 250MCG [Concomitant]
  7. FLUOCIN  ACET SOL 0.01% [Concomitant]
  8. RISPERIDONE TAB 4MG [Concomitant]
  9. TACROLIMUS [Concomitant]
     Active Substance: TACROLIMUS
  10. ZYRTEC ALLGYTAB 10MG [Concomitant]

REACTIONS (1)
  - Surgery [None]
